FAERS Safety Report 4346169-9 (Version None)
Quarter: 2004Q1

REPORT INFORMATION
  Report Type: 
  Country: None (occurrence: None)
  Receive Date: 20040325
  Receipt Date: 20040226
  Transmission Date: 20041129
  Serious: No
  Sender: FDA-Public Use
  Company Number: USA040156093

PATIENT
  Age: 80 Year
  Sex: Female

DRUGS (3)
  1. FORTEO [Suspect]
     Indication: OSTEOPOROSIS
     Dosage: 20 UG/DAY
  2. ALEVE [Concomitant]
  3. CALCIUM [Concomitant]

REACTIONS (5)
  - FEELING ABNORMAL [None]
  - INSOMNIA [None]
  - MUSCLE CRAMP [None]
  - MUSCULAR WEAKNESS [None]
  - MYALGIA [None]
